FAERS Safety Report 5676783-X (Version None)
Quarter: 2008Q2

REPORT INFORMATION
  Report Type: 
  Country: None (occurrence: None)
  Receive Date: 20080311
  Receipt Date: 20080118
  Transmission Date: 20081010
  Serious: No
  Sender: FDA-Public Use
  Company Number: 002#2#2008-00023

PATIENT
  Age: 74 Year
  Sex: Male
  Weight: 59.8748 kg

DRUGS (6)
  1. NEUPRO [Suspect]
     Indication: PARKINSON'S DISEASE
     Dosage: 4MG/24H, 1 IN 1 D; 2 MG/24H, 1 IN 1 D, TRANSDERMAL
     Route: 062
     Dates: start: 20071001, end: 20071101
  2. NEUPRO [Suspect]
     Indication: PARKINSON'S DISEASE
     Dosage: 4MG/24H, 1 IN 1 D; 2 MG/24H, 1 IN 1 D, TRANSDERMAL
     Route: 062
     Dates: start: 20071101
  3. COMTAN [Concomitant]
  4. SINEMET [Concomitant]
  5. AMANTADINE HCL [Concomitant]
  6. PROPILANONE 0.5% [Concomitant]

REACTIONS (4)
  - APPLICATION SITE ERYTHEMA [None]
  - APPLICATION SITE PRURITUS [None]
  - APPLICATION SITE REACTION [None]
  - DRUG INEFFECTIVE [None]
